FAERS Safety Report 6072949-8 (Version None)
Quarter: 2009Q1

REPORT INFORMATION
  Report Type: 
  Country: None (occurrence: None)
  Receive Date: 20090206
  Receipt Date: 20090126
  Transmission Date: 20090719
  Serious: Yes (Hospitalization)
  Sender: FDA-Public Use
  Company Number: CHPA2009US01408

PATIENT
  Age: 49 Year
  Sex: Female
  Weight: 48 kg

DRUGS (1)
  1. EX-LAX MAX STR LAX PILLS SENNA (NCH) (SENNA GLYCOSIDES (CA SALTS OF PU [Suspect]
     Indication: LAXATIVE SUPPORTIVE CARE
     Dosage: 125 TO 200 MG, QD, ORAL
     Route: 048

REACTIONS (7)
  - BLOOD CALCIUM INCREASED [None]
  - BLOOD MAGNESIUM DECREASED [None]
  - BLOOD POTASSIUM DECREASED [None]
  - DIZZINESS [None]
  - DYSSTASIA [None]
  - INTENTIONAL DRUG MISUSE [None]
  - OVERDOSE [None]
